FAERS Safety Report 9460376 (Version 1)
Quarter: 2013Q3

REPORT INFORMATION
  Report Type: Report from Study
  Country: BR (occurrence: BR)
  Receive Date: 20130815
  Receipt Date: 20130815
  Transmission Date: 20140515
  Serious: Yes (Hospitalization)
  Sender: FDA-Public Use
  Company Number: BR-ABBOTT-13P-020-1130827-00

PATIENT
  Age: 30 Year
  Sex: Male
  Weight: 67.5 kg

DRUGS (12)
  1. HUMIRA [Suspect]
     Indication: CROHN^S DISEASE
     Route: 058
     Dates: start: 20130627
  2. HUMIRA [Suspect]
     Dosage: DAY 14
     Route: 058
  3. HUMIRA [Suspect]
     Route: 058
  4. AZATHIOPRINE [Concomitant]
     Indication: CROHN^S DISEASE
     Route: 048
     Dates: start: 201106
  5. PREDNISONE [Concomitant]
     Indication: CROHN^S DISEASE
     Route: 048
     Dates: start: 201106
  6. CALCIUM CARBONATE [Concomitant]
     Indication: CROHN^S DISEASE
     Dosage: FORM STRENGTH: 625/400 MG
     Route: 048
     Dates: start: 20130717
  7. TYLEX [Concomitant]
     Indication: PAIN
     Route: 048
     Dates: start: 201107
  8. LOPERAMIDE [Concomitant]
     Indication: DIARRHOEA
     Route: 048
     Dates: start: 201107
  9. OMEPRAZOLE [Concomitant]
     Indication: GASTRIC DISORDER
     Route: 048
     Dates: start: 201106
  10. BACTRIN [Concomitant]
     Indication: IMMUNODEFICIENCY
     Dosage: FORM STRENGTH: 400/80 MG
     Route: 048
  11. PANCREATIN [Concomitant]
     Indication: PANCREATIC INSUFFICIENCY
     Route: 048
     Dates: start: 2012
  12. ALENIA [Concomitant]
     Indication: BRONCHITIS
     Dosage: AT NIGHT
     Route: 048

REACTIONS (4)
  - Haematochezia [Not Recovered/Not Resolved]
  - Crohn^s disease [Not Recovered/Not Resolved]
  - Pyrexia [Not Recovered/Not Resolved]
  - Pain [Not Recovered/Not Resolved]
